FAERS Safety Report 6252860-X (Version None)
Quarter: 2009Q2

REPORT INFORMATION
  Report Type: 
  Country: None (occurrence: None)
  Receive Date: 20090629
  Receipt Date: 20090629
  Transmission Date: 20091009
  Serious: Yes (Hospitalization)
  Sender: FDA-Public Use
  Company Number: None

PATIENT
  Age: 62 Year
  Sex: Male

DRUGS (2)
  1. PIPERACILLIN SODIUM AND TAZOBACTAM SODIUM [Suspect]
     Indication: UPPER RESPIRATORY TRACT INFECTION
     Dosage: 1 QID IV
     Route: 042
     Dates: start: 20090406, end: 20090420
  2. AZITHROMYCIN [Suspect]
     Indication: UPPER RESPIRATORY TRACT INFECTION
     Dosage: 1 TAB EVERY DAY PO
     Route: 048
     Dates: start: 20090406, end: 20090411

REACTIONS (2)
  - CLOSTRIDIAL INFECTION [None]
  - PNEUMONIA ASPIRATION [None]
